FAERS Safety Report 6122574-5 (Version None)
Quarter: 2009Q1

REPORT INFORMATION
  Report Type: 
  Country: None (occurrence: None)
  Receive Date: 20090318
  Receipt Date: 20090316
  Transmission Date: 20090719
  Serious: Yes (Death)
  Sender: FDA-Public Use
  Company Number: RU-BRISTOL-MYERS SQUIBB COMPANY-14538789

PATIENT
  Age: 44 Year
  Sex: Male

DRUGS (2)
  1. REYATAZ [Suspect]
     Indication: HIV INFECTION
     Route: 048
     Dates: start: 20080222, end: 20080512
  2. FLUCONAZOLE [Concomitant]
     Indication: CANDIDIASIS

REACTIONS (2)
  - CANDIDA PNEUMONIA [None]
  - GASTROINTESTINAL CANDIDIASIS [None]
